FAERS Safety Report 25236638 (Version 1)
Quarter: 2025Q2

REPORT INFORMATION
  Report Type: Spontaneous
  Country: HR (occurrence: HR)
  Receive Date: 20250424
  Receipt Date: 20250424
  Transmission Date: 20250716
  Serious: Yes (Other)
  Sender: NOVARTIS
  Company Number: HR-002147023-NVSC2025HR064651

PATIENT
  Sex: Male

DRUGS (4)
  1. LEQVIO [Suspect]
     Active Substance: INCLISIRAN SODIUM
     Indication: Hyperlipidaemia
     Route: 058
  2. MOXONIDINE [Concomitant]
     Active Substance: MOXONIDINE
     Indication: Product used for unknown indication
     Route: 065
  3. ASPIRIN [Concomitant]
     Active Substance: ASPIRIN
     Indication: Product used for unknown indication
     Route: 065
  4. TICAGRELOR [Concomitant]
     Active Substance: TICAGRELOR
     Indication: Product used for unknown indication
     Route: 065

REACTIONS (18)
  - Mitral valve incompetence [Unknown]
  - Renal atrophy [Unknown]
  - Coronary artery occlusion [Unknown]
  - Ischaemic cardiomyopathy [Unknown]
  - Retinopathy hypertensive [Unknown]
  - Renal artery occlusion [Unknown]
  - Renal artery stenosis [Unknown]
  - Aortic thrombosis [Unknown]
  - Coronary artery disease [Unknown]
  - Aortic aneurysm [Unknown]
  - Arteriosclerosis [Unknown]
  - Intermittent claudication [Unknown]
  - Fatigue [Unknown]
  - Balance disorder [Unknown]
  - Arthralgia [Unknown]
  - Bursitis [Unknown]
  - Nocturia [Unknown]
  - Dyspnoea [Unknown]
